FAERS Safety Report 8613194-9 (Version None)
Quarter: 2012Q3

REPORT INFORMATION
  Report Type: 
  Country: None (occurrence: None)
  Receive Date: 20120822
  Receipt Date: 20120815
  Transmission Date: 20120928
  Serious: Yes (Death, Hospitalization, Other)
  Sender: FDA-Public Use
  Company Number: VN-BAXTER-2012BAX014823

PATIENT
  Age: 42 Year
  Sex: Female

DRUGS (1)
  1. DIANEAL [Suspect]
     Dosage: 4 BAGS PER DAY
     Route: 033
     Dates: start: 20070504, end: 20120728

REACTIONS (3)
  - ASTHENIA [None]
  - VOMITING [None]
  - HYPOPHAGIA [None]
